FAERS Safety Report 16542796 (Version 3)
Quarter: 2019Q3

REPORT INFORMATION
  Report Type: Spontaneous
  Country: IR (occurrence: IR)
  Receive Date: 20190709
  Receipt Date: 20190717
  Transmission Date: 20191004
  Serious: No
  Sender: FDA-Public Use
  Company Number: IR-CIPLA LTD.-2019IR04913

PATIENT

DRUGS (4)
  1. OXALIPLATIN. [Suspect]
     Active Substance: OXALIPLATIN
     Indication: SIGNET-RING CELL CARCINOMA
     Dosage: UNK, 6 CYCLES
     Route: 065
  2. TAXOTERE [Suspect]
     Active Substance: DOCETAXEL
     Indication: SIGNET-RING CELL CARCINOMA
     Dosage: UNK, 6 CYCLES
     Route: 065
  3. PANTOPRAZOLE [Concomitant]
     Active Substance: PANTOPRAZOLE
     Indication: DYSPEPSIA
     Dosage: UNK
     Route: 065
  4. FLUOROURACIL. [Suspect]
     Active Substance: FLUOROURACIL
     Indication: GASTRIC CANCER
     Dosage: UNK, 6 CYCLES
     Route: 065

REACTIONS (8)
  - Drug intolerance [Unknown]
  - Asthenia [Unknown]
  - Anxiety [Unknown]
  - Myalgia [Unknown]
  - Hypoaesthesia [Unknown]
  - Alopecia [Unknown]
  - Decreased appetite [Unknown]
  - Dry mouth [Unknown]
